FAERS Safety Report 25983660 (Version 1)
Quarter: 2025Q4

REPORT INFORMATION
  Report Type: Spontaneous
  Country: JP (occurrence: JP)
  Receive Date: 20251031
  Receipt Date: 20251031
  Transmission Date: 20260118
  Serious: Yes (Hospitalization)
  Sender: NOVO NORDISK
  Company Number: JP-NOVOPROD-1547078

PATIENT
  Age: 48 Year
  Sex: Female
  Weight: 121 kg

DRUGS (12)
  1. WEGOVY [Suspect]
     Active Substance: SEMAGLUTIDE
     Dosage: 0.5 MG, QW
     Route: 058
  2. WEGOVY [Suspect]
     Active Substance: SEMAGLUTIDE
     Indication: Obesity
     Dosage: 0.25 MG, QW
     Route: 058
     Dates: start: 20250716
  3. WEGOVY [Suspect]
     Active Substance: SEMAGLUTIDE
     Dosage: 1 MG, QW
     Route: 058
  4. INSULIN ICODEC [Suspect]
     Active Substance: INSULIN ICODEC
     Dosage: 40 IU, QW
     Route: 058
  5. INSULIN ICODEC [Suspect]
     Active Substance: INSULIN ICODEC
     Dosage: 50 IU, QW
     Route: 058
  6. INSULIN ICODEC [Suspect]
     Active Substance: INSULIN ICODEC
     Dosage: 70 IU, QW
     Route: 058
  7. INSULIN ICODEC [Suspect]
     Active Substance: INSULIN ICODEC
     Dosage: 80 IU, QW
     Route: 058
  8. INSULIN ICODEC [Suspect]
     Active Substance: INSULIN ICODEC
     Dosage: 100 IU, QW
     Route: 058
  9. INSULIN ICODEC [Suspect]
     Active Substance: INSULIN ICODEC
     Dosage: 120 IU, QW
     Route: 058
  10. INSULIN ICODEC [Suspect]
     Active Substance: INSULIN ICODEC
     Dosage: DOSE DECREASED
     Route: 058
  11. INSULIN ICODEC [Suspect]
     Active Substance: INSULIN ICODEC
     Indication: Type 2 diabetes mellitus
     Dosage: 30 IU, QW
     Route: 058
     Dates: start: 20250515
  12. INSULIN ICODEC [Suspect]
     Active Substance: INSULIN ICODEC
     Dosage: 30 IU, QW
     Route: 058

REACTIONS (2)
  - Glycosylated haemoglobin increased [Unknown]
  - Weight loss poor [Unknown]

NARRATIVE: CASE EVENT DATE: 20251003
